FAERS Safety Report 6899290-5 (Version None)
Quarter: 2010Q3

REPORT INFORMATION
  Report Type: 
  Country: None (occurrence: None)
  Receive Date: 20100802
  Receipt Date: 20080613
  Transmission Date: 20110219
  Serious: Yes (Other)
  Sender: FDA-Public Use
  Company Number: US-PFIZER INC-2007058750

PATIENT
  Sex: Female
  Weight: 84.4 kg

DRUGS (40)
  1. LYRICA [Suspect]
     Indication: SPEECH DISORDER
     Dosage: AT NIGHT
     Route: 048
     Dates: start: 20070101
  2. QUINIDINE HCL [Concomitant]
  3. DESYREL [Concomitant]
  4. AGGRENOX [Concomitant]
  5. CELEXA [Concomitant]
  6. SIMVASTATIN [Concomitant]
  7. REQUIP [Concomitant]
  8. ACTOS [Concomitant]
  9. INDERAL LA [Concomitant]
  10. LASIX [Concomitant]
  11. K-TAB [Concomitant]
  12. NITROGLYCERIN [Concomitant]
  13. SYNTHROID [Concomitant]
  14. NEXIUM [Concomitant]
  15. CORICIDIN D SRT [Suspect]
  16. NASONEX [Concomitant]
  17. ALBUTEROL [Concomitant]
  18. ATROVENT [Concomitant]
  19. EPIPEN [Concomitant]
  20. MIRALAX [Concomitant]
  21. DULCOLAX [Concomitant]
  22. FIBERCON [Concomitant]
  23. ZANAFLEX [Concomitant]
  24. RESTORIL [Concomitant]
  25. BUSPAR [Concomitant]
  26. TRAZODONE [Concomitant]
  27. MECLIZINE [Concomitant]
  28. IMITREX [Concomitant]
  29. SYNALAR [Concomitant]
  30. CLOTRIMAZOLE [Concomitant]
  31. VITAMIN B-12 [Concomitant]
  32. VITAMIN B6 [Concomitant]
  33. FOLIC ACID [Concomitant]
  34. CALCIUM [Concomitant]
  35. MAGNESIUM CITRATE [Concomitant]
  36. MULTI-VITAMINS [Concomitant]
  37. DITROPAN [Concomitant]
  38. METHADONE HCL [Concomitant]
  39. MANDELAMINE [Concomitant]
  40. ALL OTHER THERAPEUTIC PRODUCTS [Suspect]

REACTIONS (5)
  - ARTHRALGIA [None]
  - HEADACHE [None]
  - INSOMNIA [None]
  - VISION BLURRED [None]
  - VISUAL ACUITY REDUCED [None]
